FAERS Safety Report 13470236 (Version 1)
Quarter: 2017Q2

REPORT INFORMATION
  Report Type: Spontaneous
  Country: US (occurrence: US)
  Receive Date: 20170421
  Receipt Date: 20170421
  Transmission Date: 20170830
  Serious: Yes (Other)
  Sender: FDA-Public Use
  Company Number: None

PATIENT
  Sex: Female

DRUGS (1)
  1. PROLIA [Suspect]
     Active Substance: DENOSUMAB
     Dosage: 60MG Q6M SUBQ
     Route: 058
     Dates: start: 20170208

REACTIONS (3)
  - Pain in extremity [None]
  - Muscle spasms [None]
  - Musculoskeletal pain [None]
